FAERS Safety Report 15749991 (Version 1)
Quarter: 2018Q4

REPORT INFORMATION
  Report Type: Spontaneous
  Country: US (occurrence: US)
  Receive Date: 20181205
  Receipt Date: 20181205
  Transmission Date: 20190205
  Serious: Yes (Death)
  Sender: FDA-Public Use
  Company Number: None

PATIENT
  Age: 12 Year
  Sex: Female
  Weight: 43.4 kg

DRUGS (6)
  1. METHOTREXATE. [Suspect]
     Active Substance: METHOTREXATE
     Dates: end: 20181107
  2. ONCASPAR [Suspect]
     Active Substance: PEGASPARGASE
     Dates: end: 20181103
  3. VINCRISTINE SULFATE. [Suspect]
     Active Substance: VINCRISTINE SULFATE
     Dates: end: 20181121
  4. PREDNISONE. [Suspect]
     Active Substance: PREDNISONE
     Dates: end: 20181123
  5. CYTARABINE. [Suspect]
     Active Substance: CYTARABINE
     Dates: end: 20181031
  6. DAUNORUBICIN [Suspect]
     Active Substance: DAUNORUBICIN
     Dates: end: 20181121

REACTIONS (22)
  - Ascites [None]
  - Clostridium test positive [None]
  - Coagulopathy [None]
  - Hyperglycaemia [None]
  - Nausea [None]
  - Pallor [None]
  - Abdominal distension [None]
  - Gastrointestinal necrosis [None]
  - Cardiac arrest [None]
  - Renal failure [None]
  - Transaminases increased [None]
  - Lethargy [None]
  - Mental status changes [None]
  - Pleural effusion [None]
  - Inappropriate antidiuretic hormone secretion [None]
  - Hypoalbuminaemia [None]
  - Hepatic failure [None]
  - Abdominal pain [None]
  - Hyperbilirubinaemia [None]
  - Multiple organ dysfunction syndrome [None]
  - Colitis [None]
  - Hypothermia [None]

NARRATIVE: CASE EVENT DATE: 20181124
